FAERS Safety Report 15820909 (Version 2)
Quarter: 2019Q4

REPORT INFORMATION
  Report Type: Report from Study
  Country: CA (occurrence: CA)
  Receive Date: 20190114
  Receipt Date: 20191031
  Transmission Date: 20200122
  Serious: Yes (Other)
  Sender: FDA-Public Use
  Company Number: CA-JNJFOC-20190112817

PATIENT
  Age: 56 Year
  Sex: Female

DRUGS (1)
  1. SIMPONI [Suspect]
     Active Substance: GOLIMUMAB
     Indication: RHEUMATOID ARTHRITIS
     Route: 058
     Dates: start: 20160112, end: 20191023

REACTIONS (3)
  - Haemoglobin decreased [Unknown]
  - Therapeutic response decreased [Unknown]
  - Urosepsis [Unknown]

NARRATIVE: CASE EVENT DATE: 20190109
